FAERS Safety Report 12918243 (Version 1)
Quarter: 2016Q4

REPORT INFORMATION
  Report Type: Spontaneous
  Country: US (occurrence: US)
  Receive Date: 20161107
  Receipt Date: 20161107
  Transmission Date: 20170207
  Serious: No
  Sender: FDA-Public Use
  Company Number: US-VERTEX PHARMACEUTICALS-2016-006198

PATIENT
  Sex: Male

DRUGS (17)
  1. PHENOL. [Concomitant]
     Active Substance: PHENOL
  2. VITAMIN B12 + FOLIC ACID [Concomitant]
  3. VITAMIN A [Concomitant]
     Active Substance: VITAMIN A
  4. DICLOFENAC SODIUM. [Concomitant]
     Active Substance: DICLOFENAC SODIUM
  5. SULFASALAZINE. [Concomitant]
     Active Substance: SULFASALAZINE
  6. SALINE [Concomitant]
     Active Substance: SODIUM CHLORIDE
  7. PERCOCET [Concomitant]
     Active Substance: ACETAMINOPHEN\OXYCODONE HYDROCHLORIDE
  8. NOVOLOG [Concomitant]
     Active Substance: INSULIN ASPART
  9. NEXIUM [Concomitant]
     Active Substance: ESOMEPRAZOLE MAGNESIUM
  10. VITAMIN D [Concomitant]
     Active Substance: CHOLECALCIFEROL
  11. VITAMIN E [Concomitant]
     Active Substance: .ALPHA.-TOCOPHEROL
  12. PLAQUENIL [Concomitant]
     Active Substance: HYDROXYCHLOROQUINE SULFATE
  13. KALYDECO [Suspect]
     Active Substance: IVACAFTOR
     Indication: CYSTIC FIBROSIS
     Dosage: 150 MG, BID
     Route: 048
     Dates: start: 201207
  14. SINGULAIR [Concomitant]
     Active Substance: MONTELUKAST SODIUM
  15. SELENIUM [Concomitant]
     Active Substance: SELENIUM
  16. DEPAKOTE [Concomitant]
     Active Substance: DIVALPROEX SODIUM
  17. ALBUTEROL SULFATE. [Concomitant]
     Active Substance: ALBUTEROL SULFATE

REACTIONS (2)
  - Depression [Unknown]
  - Sinus operation [Unknown]

NARRATIVE: CASE EVENT DATE: 2016
